FAERS Safety Report 9714289 (Version 2)
Quarter: 2013Q4

REPORT INFORMATION
  Report Type: Spontaneous
  Country: US (occurrence: US)
  Receive Date: 20131126
  Receipt Date: 20131126
  Transmission Date: 20140711
  Serious: No
  Sender: FDA-Public Use
  Company Number: US-GILEAD-2008-0018786

PATIENT
  Sex: Female
  Weight: 89.81 kg

DRUGS (18)
  1. LETAIRIS [Suspect]
     Indication: PULMONARY ARTERIAL HYPERTENSION
     Route: 048
     Dates: start: 20070901
  2. COUMADIN [Suspect]
     Route: 048
  3. OXYGEN [Suspect]
     Route: 045
  4. VIAGRA [Suspect]
     Route: 048
  5. SPIRIVA [Suspect]
     Route: 055
  6. DIGOXIN [Suspect]
     Route: 048
  7. TOPROL XL [Suspect]
     Route: 048
  8. FUROSEMIDE [Suspect]
     Route: 048
  9. FLONASE [Suspect]
     Route: 055
  10. LOMOTIL [Suspect]
     Route: 048
  11. ALBUTEROL [Suspect]
     Route: 055
  12. FLUOXETINE [Suspect]
     Route: 048
  13. HYDROCODONE [Suspect]
     Route: 048
  14. CLONAZEPAM [Suspect]
     Route: 048
  15. AMBIEN CR [Suspect]
     Route: 048
  16. LEVOTHROID [Suspect]
     Route: 048
  17. K-DUR [Suspect]
     Route: 048
  18. TUMS [Suspect]
     Route: 048

REACTIONS (1)
  - Migraine [Unknown]
